FAERS Safety Report 5621941-3 (Version None)
Quarter: 2008Q1

REPORT INFORMATION
  Report Type: 
  Country: None (occurrence: None)
  Receive Date: 20080211
  Receipt Date: 20080130
  Transmission Date: 20080703
  Serious: Yes (Congenital Anomaly)
  Sender: FDA-Public Use
  Company Number: A0690840A

PATIENT
  Sex: Female

DRUGS (5)
  1. PAXIL [Suspect]
     Indication: ANXIETY
     Dates: start: 20010401
  2. ANTI-NAUSEA DRUGS [Concomitant]
     Dates: start: 20040101
  3. PROMETHAZINE [Concomitant]
     Dates: start: 20040501, end: 20040601
  4. PRENATAL VITAMINS [Concomitant]
     Dates: start: 20040101, end: 20050101
  5. FOLIC ACID [Concomitant]
     Dates: start: 20040101

REACTIONS (12)
  - ANOMALOUS PULMONARY VENOUS CONNECTION [None]
  - ATRIAL SEPTAL DEFECT [None]
  - CARDIAC FAILURE CONGESTIVE [None]
  - DRUG DEPENDENCE [None]
  - DRUG EXPOSURE DURING PREGNANCY [None]
  - FAILURE TO THRIVE [None]
  - INFLUENZA [None]
  - LUNG INFECTION [None]
  - SCAR [None]
  - SLEEP DISORDER [None]
  - SLEEP TERROR [None]
  - VENTRICULAR SEPTAL DEFECT [None]
